FAERS Safety Report 9621260 (Version 1)
Quarter: 2013Q4

REPORT INFORMATION
  Report Type: Report from Study
  Country: CA (occurrence: CA)
  Receive Date: 20131015
  Receipt Date: 20131015
  Transmission Date: 20140711
  Serious: Yes (Other)
  Sender: FDA-Public Use
  Company Number: CA-JNJFOC-20131005077

PATIENT
  Age: 29 Year
  Sex: Female
  Weight: 86.6 kg

DRUGS (3)
  1. REMICADE [Suspect]
     Indication: PSORIATIC ARTHROPATHY
     Dosage: 56TH INFUSION
     Route: 042
     Dates: start: 20131007
  2. REMICADE [Suspect]
     Indication: PSORIATIC ARTHROPATHY
     Route: 042
     Dates: start: 200701
  3. MULTIVITAMINS [Concomitant]
     Route: 048

REACTIONS (4)
  - Ovarian cyst [Recovering/Resolving]
  - Chlamydial infection [Recovering/Resolving]
  - Cystitis [Recovering/Resolving]
  - Herpes zoster [Recovering/Resolving]
